FAERS Safety Report 24408884 (Version 1)
Quarter: 2024Q4

REPORT INFORMATION
  Report Type: Spontaneous
  Country: AT (occurrence: AT)
  Receive Date: 20241007
  Receipt Date: 20241007
  Transmission Date: 20250114
  Serious: Yes (Other)
  Sender: JOHNSON AND JOHNSON
  Company Number: AT-JNJFOC-20241003299

PATIENT
  Sex: Male

DRUGS (4)
  1. STELARA [Suspect]
     Active Substance: USTEKINUMAB
     Indication: Crohn^s disease
     Route: 058
  2. STELARA [Suspect]
     Active Substance: USTEKINUMAB
     Route: 058
  3. MESALAMINE [Concomitant]
     Active Substance: MESALAMINE
     Dosage: 2-3XGEF/D
  4. PENTASA [Concomitant]
     Active Substance: MESALAMINE

REACTIONS (4)
  - Clostridium difficile infection [Unknown]
  - Large intestinal obstruction [Unknown]
  - Gastrointestinal erosion [Unknown]
  - Off label use [Unknown]
